FAERS Safety Report 23680780 (Version 1)
Quarter: 2024Q1

REPORT INFORMATION
  Report Type: Spontaneous
  Country: DE (occurrence: DE)
  Receive Date: 20240328
  Receipt Date: 20240328
  Transmission Date: 20240410
  Serious: Yes (Death, Other)
  Sender: FDA-Public Use
  Company Number: DE-ABBVIE-5696136

PATIENT
  Sex: Male

DRUGS (1)
  1. VENETOCLAX [Suspect]
     Active Substance: VENETOCLAX
     Indication: Waldenstrom^s macroglobulinaemia
     Route: 048
     Dates: start: 202108

REACTIONS (8)
  - Death [Fatal]
  - Empyema [Unknown]
  - Off label use [Unknown]
  - Malignant transformation [Unknown]
  - Inflammation [Unknown]
  - Diffuse large B-cell lymphoma [Unknown]
  - Palliative care [Unknown]
  - Non-Hodgkin^s lymphoma unspecified histology indolent [Recovering/Resolving]
